FAERS Safety Report 6192006-X (Version None)
Quarter: 2009Q2

REPORT INFORMATION
  Report Type: 
  Country: None (occurrence: None)
  Receive Date: 20090515
  Receipt Date: 20090506
  Transmission Date: 20091009
  Serious: Yes (Hospitalization)
  Sender: FDA-Public Use
  Company Number: B0572891A

PATIENT
  Sex: Female

DRUGS (12)
  1. ARIXTRA [Suspect]
     Indication: PULMONARY EMBOLISM
     Dosage: 7.5MG PER DAY
     Route: 058
     Dates: start: 20090310
  2. KARDEGIC [Suspect]
     Dosage: 75MG PER DAY
     Route: 048
     Dates: start: 20070101, end: 20090310
  3. PREVISCAN [Suspect]
     Indication: PULMONARY EMBOLISM
     Dosage: 20MG AT NIGHT
     Route: 048
     Dates: start: 20090310, end: 20090315
  4. PERINDOPRIL ERBUMINE [Concomitant]
     Route: 065
  5. CARDENSIEL [Concomitant]
     Route: 065
  6. LANSOPRAZOLE [Concomitant]
     Route: 065
  7. OSTRAM VITAMINE D3 [Concomitant]
     Route: 065
     Dates: start: 20050101
  8. DUPHALAC [Concomitant]
     Route: 065
  9. ACETAMINOPHEN [Concomitant]
     Route: 065
  10. SEROPRAM [Concomitant]
     Route: 065
     Dates: start: 20081101
  11. FORTIMEL [Concomitant]
     Route: 065
  12. CETORNAN [Concomitant]
     Route: 065

REACTIONS (8)
  - EPISTAXIS [None]
  - HAEMATURIA [None]
  - HYPOTENSION [None]
  - INTERNATIONAL NORMALISED RATIO INCREASED [None]
  - METRORRHAGIA [None]
  - PERIPHERAL COLDNESS [None]
  - PYREXIA [None]
  - RASH MACULAR [None]
